FAERS Safety Report 7658713-4 (Version None)
Quarter: 2011Q3

REPORT INFORMATION
  Report Type: 
  Country: None (occurrence: None)
  Receive Date: 20110805
  Receipt Date: 20110720
  Transmission Date: 20111222
  Serious: Yes (Other)
  Sender: FDA-Public Use
  Company Number: GB-AMGEN-GBRCT2011037353

PATIENT
  Sex: Male

DRUGS (5)
  1. NEULASTA [Suspect]
     Indication: PRODUCT USED FOR UNKNOWN INDICATION
  2. PACLITAXEL [Concomitant]
     Dosage: 402 MG, UNK
     Dates: start: 20110506
  3. CISPLATIN [Concomitant]
     Dosage: 46 MG, UNK
     Dates: start: 20110510
  4. IFOSFAMIDE [Concomitant]
     Dosage: 2320 MG, UNK
     Dates: start: 20110511
  5. GEMCITABINE [Concomitant]
     Dosage: 2774 MG, UNK
     Dates: start: 20110506

REACTIONS (2)
  - ANAEMIA [None]
  - FATIGUE [None]
